FAERS Safety Report 9670659 (Version 1)
Quarter: 2013Q4

REPORT INFORMATION
  Report Type: Spontaneous
  Country: BR (occurrence: BR)
  Receive Date: 20131106
  Receipt Date: 20131106
  Transmission Date: 20140711
  Serious: Yes (Other)
  Sender: FDA-Public Use
  Company Number: BR-BRISTOL-MYERS SQUIBB COMPANY-19646793

PATIENT
  Age: 65 Year
  Sex: Female
  Weight: 102 kg

DRUGS (12)
  1. BYETTA PEN DISPOSABLE [Suspect]
     Indication: WEIGHT DECREASED
     Route: 058
     Dates: start: 201308
  2. BYETTA PEN DISPOSABLE [Suspect]
     Indication: TYPE 2 DIABETES MELLITUS
     Route: 058
     Dates: start: 201308
  3. INSULIN HUMAN [Concomitant]
     Indication: TYPE 2 DIABETES MELLITUS
     Route: 058
  4. REGULAR INSULIN [Concomitant]
     Indication: TYPE 2 DIABETES MELLITUS
     Route: 058
  5. OMEPRAZOLE [Concomitant]
     Indication: GASTRIC DISORDER
     Dosage: TABS
     Route: 048
  6. ROSUVASTATIN [Concomitant]
     Indication: PROPHYLAXIS
     Dosage: TABS
     Route: 048
  7. ESCITALOPRAM [Concomitant]
     Indication: DEPRESSION
     Dosage: TABS
     Route: 048
  8. ATENOLOL [Concomitant]
     Indication: HYPERTENSION
     Dosage: TABS
     Route: 048
  9. LOSARTAN [Concomitant]
     Indication: HYPERTENSION
     Dosage: TABS
     Route: 048
  10. FUROSEMIDE [Concomitant]
     Indication: HYPERTENSION
     Dosage: TABS
     Route: 048
  11. AMLODIPINE BESYLATE [Concomitant]
     Indication: HYPERTENSION
     Dosage: TABS
     Route: 048
  12. ASPIRIN PREVENT [Concomitant]
     Indication: HYPERTENSION
     Dosage: TABS
     Route: 048

REACTIONS (12)
  - Heart rate increased [Recovered/Resolved]
  - Blood pressure increased [Recovered/Resolved]
  - Neck pain [Recovered/Resolved]
  - Weight decreased [Unknown]
  - Vomiting [Recovered/Resolved]
  - Dizziness [Recovered/Resolved]
  - Decreased appetite [Unknown]
  - Product quality issue [Unknown]
  - Diarrhoea [Not Recovered/Not Resolved]
  - Flatulence [Not Recovered/Not Resolved]
  - Asthenia [Not Recovered/Not Resolved]
  - Drug dose omission [Unknown]
